FAERS Safety Report 20739998 (Version 1)
Quarter: 2022Q2

REPORT INFORMATION
  Report Type: Spontaneous
  Country: JP (occurrence: JP)
  Receive Date: 20220422
  Receipt Date: 20220422
  Transmission Date: 20220721
  Serious: Yes (Other)
  Sender: FDA-Public Use
  Company Number: JP-PFIZER INC-202200528564

PATIENT
  Age: 78 Year
  Sex: Female
  Weight: 44 kg

DRUGS (10)
  1. METHYLPREDNISOLONE SODIUM SUCCINATE [Suspect]
     Active Substance: METHYLPREDNISOLONE SODIUM SUCCINATE
     Indication: COVID-19
     Dosage: 1 G FOR 3 DAYS (DAY 1 TO DAY 3)
  2. METHYLPREDNISOLONE SODIUM SUCCINATE [Suspect]
     Active Substance: METHYLPREDNISOLONE SODIUM SUCCINATE
     Indication: Acute respiratory distress syndrome
     Dosage: 40 MG, DAY 3 TO DAY 10
  3. DEXAMETHASONE [Concomitant]
     Active Substance: DEXAMETHASONE
     Indication: COVID-19
     Dosage: 8 MG, DAILY, DAY 3 TO DAY 5
  4. DEXAMETHASONE [Concomitant]
     Active Substance: DEXAMETHASONE
     Indication: Acute respiratory distress syndrome
     Dosage: 4 MG, DAILY, DAY 10 TO DAY 15
  5. PREDNISOLONE [Suspect]
     Active Substance: PREDNISOLONE
     Indication: COVID-19
     Dosage: 30 MG, DAILY, DAY 15 TO DAY 25
  6. PREDNISOLONE [Suspect]
     Active Substance: PREDNISOLONE
     Indication: Acute respiratory distress syndrome
     Dosage: 20 MG, DAILY, DAY 25 TO DAY 32
  7. PREDNISOLONE [Suspect]
     Active Substance: PREDNISOLONE
     Dosage: 10 MG, DAILY, DAY 32 TO DAY 39
  8. NAFAMOSTAT [Concomitant]
     Active Substance: NAFAMOSTAT
     Indication: COVID-19
     Dosage: SINCE DAY 3
  9. NAFAMOSTAT [Concomitant]
     Active Substance: NAFAMOSTAT
     Indication: Acute respiratory distress syndrome
  10. LEVOFLOXACIN [Concomitant]
     Active Substance: LEVOFLOXACIN
     Route: 042

REACTIONS (2)
  - Bronchopulmonary aspergillosis [Recovered/Resolved]
  - Off label use [Unknown]
